FAERS Safety Report 9136584 (Version 1)
Quarter: 2013Q1

REPORT INFORMATION
  Report Type: Spontaneous
  Country: US (occurrence: US)
  Receive Date: 20130304
  Receipt Date: 20130304
  Transmission Date: 20140127
  Serious: No
  Sender: FDA-Public Use
  Company Number: US-ABBOTT-12P-163-1002927-00

PATIENT
  Age: 37 None
  Sex: Male
  Weight: 90.8 kg

DRUGS (5)
  1. ANDROGEL [Suspect]
     Indication: BLOOD TESTOSTERONE DECREASED
     Dosage: 2 PUMPS DAILY
     Dates: start: 201208
  2. UNSPECIFIED INGREDIENT [Suspect]
     Indication: DRUG THERAPY
  3. CLONAZEPAM [Concomitant]
     Indication: PRODUCT USED FOR UNKNOWN INDICATION
  4. INVEGA [Concomitant]
     Indication: PSYCHOTIC DISORDER
     Dosage: 2 WEEKS AGO, SWITCHED FROM LITHIUM
     Dates: start: 201210
  5. LEVOTHYROXINE [Concomitant]
     Indication: THYROID DISORDER

REACTIONS (2)
  - Breast enlargement [Not Recovered/Not Resolved]
  - Weight increased [Unknown]
